FAERS Safety Report 23542414 (Version 3)
Quarter: 2024Q1

REPORT INFORMATION
  Report Type: Report from Study
  Country: DE (occurrence: DE)
  Receive Date: 20240220
  Receipt Date: 20240304
  Transmission Date: 20240410
  Serious: Yes (Hospitalization)
  Sender: FDA-Public Use
  Company Number: DE-ABBVIE-5645161

PATIENT
  Age: 76 Year
  Sex: Male
  Weight: 60 kg

DRUGS (3)
  1. CARBIDOPA\LEVODOPA [Suspect]
     Active Substance: CARBIDOPA\LEVODOPA
     Indication: Parkinson^s disease
     Dosage: MD: 3 ML; CRD: 2.8ML/H; CRN: 2.8ML/H; ED:1.4ML
     Route: 050
     Dates: start: 20211017
  2. CARBIDOPA\LEVODOPA [Suspect]
     Active Substance: CARBIDOPA\LEVODOPA
     Dosage: MD: 3.0ML; CRD: 3.0ML/H; CRN: 3.0ML/H, ED:1.4ML
     Route: 050
  3. SARS-CoV-2 vaccine [Concomitant]
     Indication: COVID-19 prophylaxis
     Route: 065
     Dates: start: 20231026, end: 20231026

REACTIONS (4)
  - Fungal oesophagitis [Not Recovered/Not Resolved]
  - Vomiting [Not Recovered/Not Resolved]
  - Dysphagia [Not Recovered/Not Resolved]
  - Pneumonia [Recovered/Resolved]

NARRATIVE: CASE EVENT DATE: 20240205
